FAERS Safety Report 12261983 (Version 1)
Quarter: 2016Q2

REPORT INFORMATION
  Report Type: Spontaneous
  Country: US (occurrence: US)
  Receive Date: 20160413
  Receipt Date: 20160413
  Transmission Date: 20160815
  Serious: No
  Sender: FDA-Public Use
  Company Number: US-BAYER-2016-070274

PATIENT
  Age: 64 Year
  Sex: Female
  Weight: 58.5 kg

DRUGS (3)
  1. CLARITIN [Suspect]
     Active Substance: LORATADINE
     Indication: SEASONAL ALLERGY
     Dosage: 1 DF, PRN
     Route: 048
     Dates: start: 2011
  2. ASPIRIN BAYER [Concomitant]
     Active Substance: ASPIRIN
     Indication: ISCHAEMIC HEART DISEASE PROPHYLAXIS
  3. CARVEDILOL. [Concomitant]
     Active Substance: CARVEDILOL

REACTIONS (1)
  - Product use issue [None]

NARRATIVE: CASE EVENT DATE: 20160412
